FAERS Safety Report 14244958 (Version 3)
Quarter: 2019Q3

REPORT INFORMATION
  Report Type: Spontaneous
  Country: US (occurrence: US)
  Receive Date: 20171201
  Receipt Date: 20190930
  Transmission Date: 20191004
  Serious: No
  Sender: FDA-Public Use
  Company Number: US-BIOGEN-2017BI00489610

PATIENT
  Sex: Female

DRUGS (2)
  1. TYSABRI [Suspect]
     Active Substance: NATALIZUMAB
     Indication: MULTIPLE SCLEROSIS
     Route: 050
     Dates: start: 20160510
  2. TYSABRI [Suspect]
     Active Substance: NATALIZUMAB
     Dosage: INFUSED OVER ONE HOUR
     Route: 050

REACTIONS (3)
  - Stress [Not Recovered/Not Resolved]
  - Nasopharyngitis [Not Recovered/Not Resolved]
  - Vertigo [Unknown]
